FAERS Safety Report 21665339 (Version 2)
Quarter: 2022Q4

REPORT INFORMATION
  Report Type: Report from Study
  Country: US (occurrence: US)
  Receive Date: 20221201
  Receipt Date: 20221205
  Transmission Date: 20230113
  Serious: Yes (Other)
  Sender: FDA-Public Use
  Company Number: US-ABBVIE-4214426

PATIENT
  Age: 58 Year
  Sex: Female

DRUGS (1)
  1. HUMIRA [Suspect]
     Active Substance: ADALIMUMAB
     Indication: Rheumatoid arthritis
     Route: 058
     Dates: start: 20210628, end: 20210828

REACTIONS (4)
  - Fibula fracture [Recovering/Resolving]
  - Drug ineffective [Unknown]
  - Cough [Recovered/Resolved]
  - Tibia fracture [Recovering/Resolving]

NARRATIVE: CASE EVENT DATE: 20210601
